FAERS Safety Report 12106262 (Version 1)
Quarter: 2016Q1

REPORT INFORMATION
  Report Type: Spontaneous
  Country: US (occurrence: US)
  Receive Date: 20160223
  Receipt Date: 20160223
  Transmission Date: 20160526
  Serious: No
  Sender: FDA-Public Use
  Company Number: US-ASTRAZENECA-2016SE15063

PATIENT
  Age: 41 Year
  Sex: Female
  Weight: 56.7 kg

DRUGS (6)
  1. SYMBICORT [Suspect]
     Active Substance: BUDESONIDE\FORMOTEROL FUMARATE DIHYDRATE
     Indication: ASTHMA
     Dosage: 160 INTERMITTENT
     Route: 055
  2. MONTELUKAST SODIUM. [Concomitant]
     Active Substance: MONTELUKAST SODIUM
     Route: 048
     Dates: end: 20160205
  3. VENTOLIN [Concomitant]
     Active Substance: ALBUTEROL SULFATE
     Dosage: INTERMITTENT
     Route: 055
     Dates: end: 20160205
  4. AZELASTINE HYDROCHLORIDE. [Concomitant]
     Active Substance: AZELASTINE HYDROCHLORIDE
     Route: 045
     Dates: end: 20160205
  5. OMEPRAZOLE. [Suspect]
     Active Substance: OMEPRAZOLE
     Route: 048
  6. KETOTIFEN FUMARATE. [Concomitant]
     Active Substance: KETOTIFEN FUMARATE
     Dosage: INTERMITTENT
     Dates: end: 20160205

REACTIONS (10)
  - Hiatus hernia [Unknown]
  - Coeliac disease [Unknown]
  - Dyspnoea [Unknown]
  - Drug dose omission [Unknown]
  - Nasopharyngitis [Unknown]
  - Barrett^s oesophagus [Unknown]
  - Vomiting [Unknown]
  - Asthma [Unknown]
  - Intentional product misuse [Unknown]
  - Candida infection [Unknown]

NARRATIVE: CASE EVENT DATE: 2010
